FAERS Safety Report 23455614 (Version 2)
Quarter: 2024Q1

REPORT INFORMATION
  Report Type: Spontaneous
  Country: CN (occurrence: CN)
  Receive Date: 20240130
  Receipt Date: 20240304
  Transmission Date: 20240409
  Serious: Yes (Other)
  Sender: FDA-Public Use
  Company Number: CN-SA-SAC20240109001483

PATIENT
  Age: 70 Year
  Sex: Male

DRUGS (2)
  1. AMARYL [Suspect]
     Active Substance: GLIMEPIRIDE
     Dosage: UNK
     Route: 065
  2. GLIQUIDONE [Concomitant]
     Active Substance: GLIQUIDONE
     Dosage: UNK

REACTIONS (8)
  - Seizure [Recovered/Resolved]
  - Aplastic anaemia [Recovering/Resolving]
  - COVID-19 [Recovering/Resolving]
  - Hyperhidrosis [Recovering/Resolving]
  - Abnormal dreams [Recovered/Resolved]
  - Asthenia [Recovering/Resolving]
  - Haemoglobin decreased [Recovering/Resolving]
  - Blood glucose increased [Recovering/Resolving]

NARRATIVE: CASE EVENT DATE: 20221201
